FAERS Safety Report 17245729 (Version 1)
Quarter: 2020Q1

REPORT INFORMATION
  Report Type: Spontaneous
  Country: FR (occurrence: FR)
  Receive Date: 20200108
  Receipt Date: 20200108
  Transmission Date: 20200409
  Serious: Yes (Hospitalization)
  Sender: FDA-Public Use
  Company Number: FR-TEVA-2020-FR-1164256

PATIENT
  Age: 32 Year
  Sex: Female

DRUGS (2)
  1. CHLORHYDRATE DE TRAMADOL [Suspect]
     Active Substance: TRAMADOL HYDROCHLORIDE
     Indication: INTENTIONAL PRODUCT MISUSE
     Dosage: PEAK CONSUMPTION AT 10 X 100 MG LP PER DAY, 10 DOSAGE FORMS
     Route: 048
     Dates: start: 2017
  2. SERESTA [Suspect]
     Active Substance: OXAZEPAM
     Indication: INTENTIONAL PRODUCT MISUSE
     Route: 048
     Dates: end: 20190919

REACTIONS (4)
  - Memory impairment [Recovered/Resolved]
  - Somnolence [Recovered/Resolved]
  - Drug dependence [Recovering/Resolving]
  - Drug abuse [Unknown]

NARRATIVE: CASE EVENT DATE: 2018
